FAERS Safety Report 9015776 (Version 3)
Quarter: 2015Q2

REPORT INFORMATION
  Report Type: Spontaneous
  Country: JP (occurrence: None)
  Receive Date: 20130102
  Receipt Date: 20150520
  Transmission Date: 20150821
  Serious: Yes (Other)
  Sender: FDA-Public Use
  Company Number: 2010JP003369

PATIENT
  Age: 43 Year
  Sex: Female
  Weight: 61 kg

DRUGS (40)
  1. FLOMOX [Suspect]
     Active Substance: CEFCAPENE PIVOXIL HYDROCHLORIDE HYDRATE
     Indication: NASOPHARYNGITIS
     Dosage: 300 MG, UNKNOWN/D/, ORAL
     Route: 048
     Dates: start: 20091228, end: 20100101
  2. GASTER [Concomitant]
     Active Substance: FAMOTIDINE
  3. RESTAMIN (DIPHENHYDRAMINE) [Concomitant]
  4. LOPEMIN (LOPERAMIDE HYDROCHLORIDE) [Concomitant]
  5. PERSANTIN-L (DIPYRIDAMOLE) MODIFIED-RELEASE CAPSULE, HARD [Concomitant]
     Active Substance: DIPYRIDAMOLE
  6. MYSER (DIFLUPREDNATE) [Concomitant]
     Active Substance: DIFLUPREDNATE
  7. PL [Concomitant]
     Active Substance: ACETAMINOPHEN\CAFFEINE\PROMETHAZINE\SALICYLAMIDE
  8. PREMARIN [Concomitant]
     Active Substance: ESTROGENS, CONJUGATED
  9. BIOFERMIN R (ANTIBIOTICS-RESISTANT LACTIC ACID BACTERIAE) [Concomitant]
  10. ONON (PRANLUKAST HYDRATE) [Concomitant]
  11. ISODINE GARGLE (POVIDONE IODINE) [Concomitant]
  12. BREDININ (MIZORIBINE) [Concomitant]
     Active Substance: MIZORIBINE
  13. PROPETO (WHITE PETROLATUM) [Concomitant]
  14. EPADEL-S (EICOSAPENTAENOIC ACID ETHYL ESTER) [Concomitant]
  15. JUVELA (TOCOPOHERYL ACETATE) [Concomitant]
  16. FOSAMAC (ALENDRONATE SODIUM) [Concomitant]
  17. PROGRAF [Suspect]
     Active Substance: TACROLIMUS\TACROLIMUS ANHYDROUS
     Indication: LUPUS NEPHRITIS
     Dosage: 3 MG, UNKNOWN/D, ORAL
     Route: 048
     Dates: start: 20080313
  18. FLOMOX [Suspect]
     Active Substance: CEFCAPENE PIVOXIL HYDROCHLORIDE HYDRATE
     Indication: OROPHARYNGEAL PAIN
     Dosage: 300 MG, UNKNOWN/D/, ORAL
     Route: 048
     Dates: start: 20091228, end: 20100101
  19. ZITHROMAC [Suspect]
     Active Substance: AZITHROMYCIN DIHYDRATE
     Indication: TOOTH EXTRACTION
     Dosage: 2 G, UNKNOWN/D, ORAL
     Route: 048
     Dates: start: 20111013, end: 20111014
  20. EDIROL (ELDECALCITOL) CAPSULE [Concomitant]
     Active Substance: ELDECALCITOL
  21. LUTORAL (CHLORMADINONE ACETATE) [Concomitant]
     Active Substance: CHLORMADINONE ACETATE\MESTRANOL
  22. SELBEX (TEPRENONE) [Concomitant]
     Active Substance: TEPRENONE
  23. PARIET (SODIUM RABEPRAZOLE) [Concomitant]
  24. MEVALOTIN (PRAVASTATIN SODIUM) [Concomitant]
     Active Substance: PRAVASTATIN SODIUM
  25. IMURAN (AZATHIORPINE) [Concomitant]
  26. FERROMIA (FERROUS SODIUM CITRATE) [Concomitant]
  27. JUVELA N (TOCOPHERYL NICOTINATE) [Concomitant]
  28. FLOMOX [Suspect]
     Active Substance: CEFCAPENE PIVOXIL HYDROCHLORIDE HYDRATE
     Indication: TOOTH EXTRACTION
     Dosage: 300 MG, UNKNOWN/D/, ORAL
     Route: 048
     Dates: start: 20091228, end: 20100101
  29. BUSCOPAN (SCOPOLAMINE BUTYLBROMIDE) [Concomitant]
  30. BAKTAR (SULFAMETHOXAZOLE/TRIMETHOPRIM) [Concomitant]
     Active Substance: SULFAMETHOXAZOLE\TRIMETHOPRIM
  31. ALFAROL [Concomitant]
     Active Substance: ALFACALCIDOL
  32. INDOMETACIN (INDOMETACIN) [Concomitant]
     Active Substance: INDOMETHACIN
  33. ZETIA [Concomitant]
     Active Substance: EZETIMIBE
  34. LOXONIN (LOXOPROFEN SODIUM) [Concomitant]
     Active Substance: LOXOPROFEN SODIUM
  35. PREDNISOLONE. [Suspect]
     Active Substance: PREDNISOLONE
     Indication: LUPUS NEPHRITIS
     Route: 048
     Dates: end: 20080807
  36. LIPITOR [Suspect]
     Active Substance: ATORVASTATIN CALCIUM
     Indication: HYPERLIPIDAEMIA
     Route: 048
     Dates: start: 20130124, end: 20130418
  37. INCREMIN (FERRIC PYROPHOSPHATE) [Concomitant]
  38. COCARL (ACETAMINOPHEN) [Concomitant]
  39. LAC-B (BIFIDOBACTERIUM) [Concomitant]
  40. GLAKAY (MENATETRENONE) [Concomitant]

REACTIONS (19)
  - Enterocolitis viral [None]
  - Dental caries [None]
  - Hyperlipidaemia [None]
  - Back pain [None]
  - Drug interaction [None]
  - Dyspepsia [None]
  - Iron deficiency anaemia [None]
  - Muscle spasms [None]
  - Pain in extremity [None]
  - Rash [None]
  - Hypercholesterolaemia [None]
  - Pruritus [None]
  - Nasopharyngitis [None]
  - Intentional product misuse [None]
  - Allergic cough [None]
  - Oropharyngeal pain [None]
  - Eczema [None]
  - Diarrhoea [None]
  - Dry skin [None]

NARRATIVE: CASE EVENT DATE: 20090528
